FAERS Safety Report 5033422-9 (Version None)
Quarter: 2006Q2

REPORT INFORMATION
  Report Type: 
  Country: None (occurrence: None)
  Receive Date: 20060623
  Receipt Date: 20060614
  Transmission Date: 20061013
  Serious: Yes (Hospitalization, Other)
  Sender: FDA-Public Use
  Company Number: FR-SP-2006-01534

PATIENT

DRUGS (2)
  1. TICE BCG [Suspect]
  2. TUBERCULIN PPD [Suspect]

REACTIONS (3)
  - TUBERCULIN TEST NEGATIVE [None]
  - TUBERCULOSIS [None]
  - VACCINATION FAILURE [None]
